FAERS Safety Report 7519694-7 (Version None)
Quarter: 2011Q2

REPORT INFORMATION
  Report Type: 
  Country: None (occurrence: None)
  Receive Date: 20110524
  Receipt Date: 20110511
  Transmission Date: 20111010
  Serious: Yes (Congenital Anomaly, Other)
  Sender: FDA-Public Use
  Company Number: 1000011553

PATIENT
  Sex: Female
  Weight: 7.3 kg

DRUGS (15)
  1. CITALOPRAM HYDROBROMIDE [Suspect]
     Dosage: TRANSPLACENTAL
     Route: 064
     Dates: start: 20090401
  2. DICYNONE (ETAMSILATE) [Suspect]
     Dosage: 1 DOSAGE FORM (1 DOSAGE FORMS, 1 IN 1 D), TRANSPLACENTAL
     Route: 064
     Dates: end: 20090401
  3. OLMESARTAN MEDOXOMIL [Suspect]
     Dosage: (20 MG), TRANSPLACENTAL
     Route: 064
     Dates: end: 20090401
  4. DAFALGAN (PARACETAMOL) (PARACETAMOL) [Concomitant]
  5. CALCIUM CARBONATE (CALCIUM CARBONATE) (CALCIUM CARBONATE) [Concomitant]
  6. CLOMIPRAMINE (CLOMIPRAMINE) (CLOMIPRAMINE) [Concomitant]
  7. FOLIO (FOLIC ACID) (FOLIC ACID) [Concomitant]
  8. APIDRA (INSULIN GLULISINE) (INSULIN GLULISINE) [Concomitant]
  9. LYRICA [Suspect]
     Dosage: 3 DOSAGE FORMS (1 DOSAGE FORMS, 3 IN 1 D), TRANSPLACENTAL
     Route: 064
     Dates: end: 20090401
  10. DOXIUM (CALCIUM DOBESILATE) [Suspect]
     Dosage: 3 DOSAGE FORMS (1 DOSAGE FORMS, 3 IN 1 D), TRANSPLACENTAL
     Route: 064
     Dates: end: 20090401
  11. MULTIVITAMINS (MULTIVITAMINS) (MULTIVITAMINS) [Concomitant]
  12. TERCIAN (CYAMEMAZINE) (DROPS (FOR ORAL USE)) [Suspect]
     Dosage: TRANSPLACENTAL
     Route: 064
  13. PRAZEPAM [Suspect]
     Dosage: 3 DOSAGE FORMS (1 DOSAGE FORMS, 3 IN 1 D), TRANSPLACENTAL
     Route: 064
     Dates: end: 20090401
  14. PAROXETINE HYDROCHLORIDE [Suspect]
     Dosage: 2 DOSAGE FORMS (1 DOSAGE FORMS, 2 IN 1 D), TRANSPLACENTAL
     Route: 064
     Dates: end: 20090401
  15. DEXERYL (GLYCEROL, PARAFFIN, LIQUID/WHITE SOFT PARAFFIN) (GLYCEROL, PA [Concomitant]

REACTIONS (9)
  - LIP DISORDER [None]
  - POLYHYDRAMNIOS [None]
  - PREMATURE BABY [None]
  - MATERNAL DRUGS AFFECTING FOETUS [None]
  - ATRIAL SEPTAL DEFECT [None]
  - ORAL DISORDER [None]
  - CAESAREAN SECTION [None]
  - CONGENITAL JAW MALFORMATION [None]
  - BREECH PRESENTATION [None]
